FAERS Safety Report 9580172 (Version 1)
Quarter: 2013Q3

REPORT INFORMATION
  Report Type: Spontaneous
  Country: US (occurrence: None)
  Receive Date: 20130916
  Receipt Date: 20130916
  Transmission Date: 20140515
  Serious: Yes (Other)
  Sender: FDA-Public Use
  Company Number: JPI-P-031321

PATIENT
  Age: 59 Year
  Sex: Male
  Weight: 106.6 kg

DRUGS (4)
  1. XYREM (500 MILLIGRAM/MILLILITERS, SOLUTION) (SODIUM OXYBATE) [Suspect]
     Indication: CATAPLEXY
     Dosage: 6 GM  (3 GM, 2 IN 1 D), ORAL
     Route: 048
     Dates: start: 20130402
  2. METHYLPHENIDATE HYDROCHLORIDE [Concomitant]
  3. LEVOTHYROXINE SODIUM [Concomitant]
  4. NEBIVOLOL [Concomitant]

REACTIONS (3)
  - Hypertension [None]
  - Condition aggravated [None]
  - Breath holding [None]
